FAERS Safety Report 25959073 (Version 1)
Quarter: 2025Q4

REPORT INFORMATION
  Report Type: Report from Study
  Country: US (occurrence: US)
  Receive Date: 20251025
  Receipt Date: 20251025
  Transmission Date: 20260118
  Serious: Yes (Other)
  Sender: TAKEDA
  Company Number: US-TAKEDA-2020TUS055949

PATIENT
  Age: 79 Year
  Sex: Female

DRUGS (2)
  1. VEDOLIZUMAB [Suspect]
     Active Substance: VEDOLIZUMAB
     Indication: Colitis ulcerative
     Dosage: 300 MILLIGRAM, Q4WEEKS
  2. VEDOLIZUMAB [Suspect]
     Active Substance: VEDOLIZUMAB
     Dosage: 300 MILLIGRAM, Q6WEEKS

REACTIONS (11)
  - Colitis ulcerative [Unknown]
  - Small intestinal obstruction [Unknown]
  - Oesophageal motility disorder [Unknown]
  - Presbyoesophagus [Unknown]
  - Haematocrit decreased [Unknown]
  - Colorectal adenoma [Unknown]
  - Scoliosis [Unknown]
  - Nitrite urine present [Unknown]
  - Haemoglobin decreased [Unknown]
  - Off label use [Unknown]
  - Headache [Unknown]
